FAERS Safety Report 15688101 (Version 1)
Quarter: 2018Q4

REPORT INFORMATION
  Report Type: Spontaneous
  Country: DE (occurrence: DE)
  Receive Date: 20181205
  Receipt Date: 20181205
  Transmission Date: 20190205
  Serious: Yes (Other)
  Sender: FDA-Public Use
  Company Number: DE-TEVA-2018-DE-981425

PATIENT
  Age: 5 Decade
  Sex: Male

DRUGS (1)
  1. DIAZEPAM-RATIOPHARM 10 MG/ML TROPFEN [Suspect]
     Active Substance: DIAZEPAM
     Indication: AGGRESSION
     Route: 048

REACTIONS (2)
  - Drug abuse [Unknown]
  - Product quality issue [Unknown]
